FAERS Safety Report 7322474-9 (Version None)
Quarter: 2011Q1

REPORT INFORMATION
  Report Type: 
  Country: None (occurrence: None)
  Receive Date: 20110125
  Receipt Date: 20101122
  Transmission Date: 20110831
  Serious: No
  Sender: FDA-Public Use
  Company Number: US-004203

PATIENT
  Sex: Male
  Weight: 88.905 kg

DRUGS (12)
  1. COZAAR [Concomitant]
  2. ZOCOR [Concomitant]
  3. AMBIEN [Concomitant]
  4. NITROSTAT [Concomitant]
  5. METOPROLOL [Concomitant]
  6. FISH OIL [Concomitant]
  7. ASPIRIN [Concomitant]
  8. M.V.I. [Concomitant]
  9. FIRMAGON [Suspect]
     Dosage: (240 MG 1X, 120 MG X 2 AT BILATERAL ABDOMINAL SITES SUBCUTANEOUS)
     Route: 058
     Dates: start: 20101025
  10. WELLBUTRIN XL [Concomitant]
  11. VITAMIN D [Concomitant]
  12. TRAZODONE HCL [Concomitant]

REACTIONS (3)
  - INJECTION SITE VESICLES [None]
  - INJECTION SITE ERYTHEMA [None]
  - INJECTION SITE RASH [None]
